FAERS Safety Report 7798239-0 (Version None)
Quarter: 2011Q4

REPORT INFORMATION
  Report Type: 
  Country: None (occurrence: None)
  Receive Date: 20111005
  Receipt Date: 20110930
  Transmission Date: 20120403
  Serious: Yes (Death, Hospitalization)
  Sender: FDA-Public Use
  Company Number: JP-JNJFOC-20110610370

PATIENT
  Sex: Female
  Weight: 60 kg

DRUGS (26)
  1. MUCOSTA [Concomitant]
     Indication: PROPHYLAXIS
     Route: 048
     Dates: start: 20090924, end: 20090927
  2. NON-PYRINE COLD PREPARATION [Concomitant]
     Indication: NASOPHARYNGITIS
     Route: 048
     Dates: start: 20091120, end: 20091121
  3. DOXORUBICIN HCL [Suspect]
     Route: 042
     Dates: start: 20100108, end: 20100108
  4. DOXORUBICIN HCL [Suspect]
     Route: 042
     Dates: start: 20100624, end: 20100624
  5. PRIMPERAN TAB [Concomitant]
     Indication: GASTROINTESTINAL HYPOMOTILITY
     Route: 048
     Dates: end: 20100906
  6. LOXONIN [Concomitant]
     Indication: NASOPHARYNGITIS
     Route: 048
     Dates: start: 20090927, end: 20090928
  7. POLARAMINE [Concomitant]
     Route: 042
     Dates: start: 20090909, end: 20090909
  8. DOXORUBICIN HCL [Suspect]
     Route: 042
     Dates: start: 20100726, end: 20100726
  9. FLOMOX [Concomitant]
     Indication: PROPHYLAXIS
     Route: 048
     Dates: start: 20090924, end: 20090927
  10. DEXTROMETHORPHAN HYDROBROMIDE [Concomitant]
     Indication: NASOPHARYNGITIS
     Route: 048
     Dates: start: 20090925, end: 20090928
  11. DOXORUBICIN HCL [Suspect]
     Route: 042
     Dates: start: 20100827, end: 20100827
  12. RAMELTEON [Concomitant]
     Route: 042
     Dates: start: 20090909, end: 20090909
  13. DOXORUBICIN HCL [Suspect]
     Indication: OVARIAN CANCER RECURRENT
     Route: 042
     Dates: start: 20090909, end: 20090909
  14. DEXAMETHASONE SODIUM PHOSPHATE [Concomitant]
     Route: 042
     Dates: start: 20091125, end: 20091125
  15. POLARAMINE [Concomitant]
     Indication: PROPHYLAXIS
     Route: 042
     Dates: start: 20091125, end: 20091125
  16. POLARAMINE [Concomitant]
     Route: 042
     Dates: start: 20091125, end: 20091125
  17. DOXORUBICIN HCL [Suspect]
     Route: 042
     Dates: start: 20091125, end: 20091125
  18. DOXORUBICIN HCL [Suspect]
     Route: 042
     Dates: start: 20100524, end: 20100524
  19. DEXAMETHASONE SODIUM PHOSPHATE [Concomitant]
     Indication: PROPHYLAXIS
     Route: 042
     Dates: start: 20090909, end: 20090909
  20. LEVOFLOXACIN [Concomitant]
     Indication: NASOPHARYNGITIS
     Route: 048
     Dates: start: 20090928, end: 20090929
  21. POLARAMINE [Concomitant]
     Indication: INFUSION RELATED REACTION
     Route: 042
     Dates: start: 20090909, end: 20090909
  22. MAGMITT [Concomitant]
     Indication: CONSTIPATION
     Route: 048
     Dates: end: 20100906
  23. ZOLPIDEM [Concomitant]
     Indication: INSOMNIA
     Route: 048
     Dates: end: 20100906
  24. JUZEN-TAIHO-TO [Concomitant]
     Indication: GENERAL PHYSICAL HEALTH DETERIORATION
     Route: 048
     Dates: end: 20090924
  25. DOXORUBICIN HCL [Suspect]
     Route: 042
     Dates: start: 20100416, end: 20100416
  26. RAMELTEON [Concomitant]
     Indication: PROPHYLAXIS
     Route: 042
     Dates: start: 20091125, end: 20091125

REACTIONS (2)
  - DEATH [None]
  - OVARIAN CANCER RECURRENT [None]
